FAERS Safety Report 18555899 (Version 1)
Quarter: 2020Q4

REPORT INFORMATION
  Report Type: Spontaneous
  Country: US (occurrence: US)
  Receive Date: 20201127
  Receipt Date: 20201127
  Transmission Date: 20210114
  Serious: Yes (Life-Threatening)
  Sender: FDA-Public Use
  Company Number: US-009507513-2011USA014288

PATIENT
  Age: 51 Year
  Sex: Female
  Weight: 63 kg

DRUGS (22)
  1. DEXAMETHASONE. [Concomitant]
     Active Substance: DEXAMETHASONE
     Dosage: 8 MG, UNK
     Route: 042
  2. SEVOFLURANE. [Concomitant]
     Active Substance: SEVOFLURANE
     Indication: ANAESTHESIA
  3. METFORMIN [Concomitant]
     Active Substance: METFORMIN HYDROCHLORIDE
     Route: 048
  4. CLINDAMYCIN. [Concomitant]
     Active Substance: CLINDAMYCIN
     Route: 065
  5. GLYCOPYRROLATE. [Concomitant]
     Active Substance: GLYCOPYRROLATE
     Indication: NEUROMUSCULAR BLOCKADE REVERSAL
  6. FENTANYL. [Concomitant]
     Active Substance: FENTANYL
     Indication: INDUCTION OF ANAESTHESIA
     Route: 040
  7. MIDAZOLAM HYDROCHLORIDE. [Concomitant]
     Active Substance: MIDAZOLAM HYDROCHLORIDE
     Indication: PREMEDICATION
     Dosage: 2 MG, UNK
     Route: 042
  8. EPINEPHRINE. [Concomitant]
     Active Substance: EPINEPHRINE
     Dosage: 0.5 MG, UNK
     Route: 042
  9. FENTANYL. [Concomitant]
     Active Substance: FENTANYL
     Indication: ANAESTHESIA
     Dosage: 50 UG, UNK
     Route: 042
  10. ONDANSETRON [Concomitant]
     Active Substance: ONDANSETRON
     Indication: NAUSEA
     Dosage: 4 MG, UNK
     Route: 042
  11. NEOSTIGMINE METHYLSULFATE. [Concomitant]
     Active Substance: NEOSTIGMINE METHYLSULFATE
     Indication: NEUROMUSCULAR BLOCKADE REVERSAL
  12. PROPOFOL. [Concomitant]
     Active Substance: PROPOFOL
     Indication: ANAESTHESIA
     Route: 042
  13. VECURONIUM BROMIDE. [Concomitant]
     Active Substance: VECURONIUM BROMIDE
     Indication: ENDOTRACHEAL INTUBATION
  14. ALBUTEROL. [Concomitant]
     Active Substance: ALBUTEROL
     Indication: PREMEDICATION
     Dosage: UNK UNK, QD
     Route: 055
  15. NITROUS OXIDE. [Concomitant]
     Active Substance: NITROUS OXIDE
     Indication: MAINTENANCE OF ANAESTHESIA
  16. DIPHENHYDRAMINE. [Concomitant]
     Active Substance: DIPHENHYDRAMINE
     Dosage: 25 MG, UNK
  17. PRINIVIL [Suspect]
     Active Substance: LISINOPRIL
     Dosage: UNK
     Route: 048
  18. ESOMEPRAZOLE. [Concomitant]
     Active Substance: ESOMEPRAZOLE MAGNESIUM
  19. FLUTICASONE. [Concomitant]
     Active Substance: FLUTICASONE
     Dosage: UNK UNK, QD
     Route: 055
  20. SALMETEROL [Concomitant]
     Active Substance: SALMETEROL
     Dosage: UNK UNK, QD
     Route: 055
  21. FENTANYL. [Concomitant]
     Active Substance: FENTANYL
     Indication: PAIN
     Route: 042
  22. SALMETEROL [Concomitant]
     Active Substance: SALMETEROL
     Route: 065

REACTIONS (2)
  - Angioedema [Recovered/Resolved]
  - Swollen tongue [Recovered/Resolved]
